FAERS Safety Report 15719164 (Version 4)
Quarter: 2019Q1

REPORT INFORMATION
  Report Type: Spontaneous
  Country: JP (occurrence: JP)
  Receive Date: 20181213
  Receipt Date: 20190319
  Transmission Date: 20190417
  Serious: Yes (Death, Hospitalization)
  Sender: FDA-Public Use
  Company Number: JP-ELI_LILLY_AND_COMPANY-JP201812003388

PATIENT
  Age: 56 Year
  Sex: Female
  Weight: 39 kg

DRUGS (5)
  1. ARIMIDEX [Concomitant]
     Active Substance: ANASTROZOLE
     Indication: BREAST CANCER RECURRENT
     Dosage: 1 MG, DAILY
     Route: 048
     Dates: start: 20181202, end: 20181206
  2. ZOLEDRONIC ACID [Concomitant]
     Active Substance: ZOLEDRONIC ACID
     Indication: PROPHYLAXIS
     Dosage: 4 MG, DAILY
     Route: 042
     Dates: start: 20141029
  3. VERZENIO [Suspect]
     Active Substance: ABEMACICLIB
     Indication: BREAST CANCER RECURRENT
     Dosage: 150 MG, BID
     Route: 048
     Dates: start: 20181202, end: 20181206
  4. CARBOCISTEINE [Concomitant]
     Active Substance: CARBOCYSTEINE
     Indication: BRONCHITIS
     Dosage: 500 MG, TID
     Route: 048
     Dates: start: 20181121, end: 20181204
  5. DEXTROMETHORPHAN HYDROBROMIDE. [Concomitant]
     Active Substance: DEXTROMETHORPHAN HYDROBROMIDE
     Indication: BRONCHITIS
     Dosage: 15 MG, UNK
     Route: 048
     Dates: start: 20181121, end: 20181204

REACTIONS (5)
  - Hepatic function abnormal [Not Recovered/Not Resolved]
  - Jaundice [Unknown]
  - Nephrocalcinosis [Not Recovered/Not Resolved]
  - Malignant neoplasm progression [Fatal]
  - Kidney angiomyolipoma [Not Recovered/Not Resolved]

NARRATIVE: CASE EVENT DATE: 20181207
